FAERS Safety Report 5209380-0 (Version None)
Quarter: 2006Q4

REPORT INFORMATION
  Report Type: 
  Country: None (occurrence: None)
  Receive Date: 20061101
  Receipt Date: 20060809
  Transmission Date: 20070319
  Serious: No
  Sender: FDA-Public Use
  Company Number: 2006PV019142

PATIENT
  Age: 54 Year
  Sex: Female
  Weight: 122.4712 kg

DRUGS (5)
  1. SYMLIN [Suspect]
     Indication: DIABETES MELLITUS NON-INSULIN-DEPENDENT
     Dosage: 120 MCG; TID; SC
     Route: 058
  2. INSULIN [Concomitant]
  3. SYNTHROID [Concomitant]
  4. BUMETANIDE [Concomitant]
  5. TENORMIN [Concomitant]

REACTIONS (6)
  - ALOPECIA [None]
  - ARTHRALGIA [None]
  - GASTROOESOPHAGEAL REFLUX DISEASE [None]
  - MYALGIA [None]
  - NAUSEA [None]
  - OILY SKIN [None]
